FAERS Safety Report 8297971 (Version 2)
Quarter: 2013Q3

REPORT INFORMATION
  Report Type: Spontaneous
  Country: JP (occurrence: None)
  Receive Date: 20111209
  Receipt Date: 20130814
  Transmission Date: 20140515
  Serious: Yes (Other)
  Sender: FDA-Public Use
  Company Number: AXC-2011-000499

PATIENT
  Age: 27 Year
  Sex: Male

DRUGS (9)
  1. URSODEOXYCHOLIC ACID [Suspect]
     Indication: PROPHYLAXIS
     Dates: start: 2010
  2. URSODEOXYCHOLIC ACID [Suspect]
     Indication: VENOOCCLUSIVE LIVER DISEASE
     Dates: start: 2010
  3. TACROLIMUS [Suspect]
     Indication: PROPHYLAXIS AGAINST GRAFT VERSUS HOST DISEASE
     Dates: start: 2010
  4. METHOTREXATE [Suspect]
     Indication: PROPHYLAXIS AGAINST GRAFT VERSUS HOST DISEASE
     Dates: start: 2010
  5. CYCLOPHOSPHAMIDE (CYCLOPHOSPHAMIDE) [Concomitant]
  6. VINCRISTINE SULFATE [Concomitant]
  7. DOXORUBICIN HYDROCHLORIDE [Concomitant]
  8. DEXAMETHASONE (DEXAMETHASONE) [Concomitant]
  9. CYTARABINE [Concomitant]

REACTIONS (8)
  - Venoocclusive liver disease [None]
  - Weight increased [None]
  - Abdominal pain upper [None]
  - Disseminated intravascular coagulation [None]
  - Refractoriness to platelet transfusion [None]
  - Stomatitis [None]
  - Graft versus host disease in skin [None]
  - Graft versus host disease in intestine [None]
